FAERS Safety Report 4424477-0 (Version None)
Quarter: 2004Q3

REPORT INFORMATION
  Report Type: 
  Country: None (occurrence: None)
  Receive Date: 20040812
  Receipt Date: 20040811
  Transmission Date: 20050211
  Serious: Yes (Other)
  Sender: FDA-Public Use
  Company Number: US-GLAXOSMITHKLINE-A0521848A

PATIENT
  Age: 55 Year
  Sex: Female

DRUGS (6)
  1. VALTREX [Suspect]
     Indication: HERPES ZOSTER
     Dosage: 1000MG THREE TIMES PER DAY
     Route: 048
     Dates: start: 20040806, end: 20040809
  2. NASACORT [Concomitant]
  3. ATROVENT [Concomitant]
  4. MAXAIR [Concomitant]
  5. CLARITIN-D [Concomitant]
  6. AZMACORT [Concomitant]

REACTIONS (6)
  - BALANCE DISORDER [None]
  - DEPRESSED LEVEL OF CONSCIOUSNESS [None]
  - DISSOCIATION [None]
  - FEELING DRUNK [None]
  - FEELING OF RELAXATION [None]
  - TINNITUS [None]
